FAERS Safety Report 17920454 (Version 1)
Quarter: 2020Q2

REPORT INFORMATION
  Report Type: Spontaneous
  Country: CN (occurrence: CN)
  Receive Date: 20200620
  Receipt Date: 20200620
  Transmission Date: 20200714
  Serious: Yes (Other)
  Sender: FDA-Public Use
  Company Number: NVSC2020CN172738

PATIENT
  Age: 74 Year
  Sex: Female
  Weight: 35 kg

DRUGS (1)
  1. ACLASTA [Suspect]
     Active Substance: ZOLEDRONIC ACID
     Indication: OSTEOPOROSIS
     Dosage: 5 MG, ONCE/SINGLE
     Route: 042
     Dates: start: 20200505

REACTIONS (2)
  - Aphasia [Recovering/Resolving]
  - Tongue movement disturbance [Recovering/Resolving]

NARRATIVE: CASE EVENT DATE: 20200505
